FAERS Safety Report 22651707 (Version 1)
Quarter: 2023Q2

REPORT INFORMATION
  Report Type: Spontaneous
  Country: US (occurrence: US)
  Receive Date: 20230628
  Receipt Date: 20230628
  Transmission Date: 20230722
  Serious: No
  Sender: FDA-Public Use
  Company Number: US-CTI BIOPHARMA-2023US03523

PATIENT

DRUGS (22)
  1. VONJO [Suspect]
     Active Substance: PACRITINIB
     Indication: Myelofibrosis
     Dosage: 200 MG, BID
     Route: 048
     Dates: start: 20221010
  2. AMLODIPINE [Concomitant]
     Active Substance: AMLODIPINE BESYLATE
  3. MINERALS\VITAMINS [Concomitant]
     Active Substance: MINERALS\VITAMINS
  4. COZAAR [Concomitant]
     Active Substance: LOSARTAN POTASSIUM
  5. CYCLOBENZAPRINE [Concomitant]
     Active Substance: CYCLOBENZAPRINE
  6. FUROSEMIDE [Concomitant]
     Active Substance: FUROSEMIDE
  7. GABAPENTIN [Concomitant]
     Active Substance: GABAPENTIN
  8. HERBALS [Concomitant]
     Active Substance: HERBALS
  9. GLIPIZIDE [Concomitant]
     Active Substance: GLIPIZIDE
  10. INREBIC [Concomitant]
     Active Substance: FEDRATINIB HYDROCHLORIDE
  11. LEVOTHYROXINE [Concomitant]
     Active Substance: LEVOTHYROXINE
  12. METFORMIN [Concomitant]
     Active Substance: METFORMIN HYDROCHLORIDE
  13. METOPROLOL [Concomitant]
     Active Substance: METOPROLOL
  14. MYRBETRIQ [Concomitant]
     Active Substance: MIRABEGRON
  15. POTASSIUM [Concomitant]
     Active Substance: POTASSIUM
  16. PRAVASTATIN [Concomitant]
     Active Substance: PRAVASTATIN
  17. PREDNISONE [Concomitant]
     Active Substance: PREDNISONE
  18. PRILOSEC [Concomitant]
     Active Substance: OMEPRAZOLE MAGNESIUM
  19. PROCHLORPERAZINE [Concomitant]
     Active Substance: PROCHLORPERAZINE
  20. THIAMINE [Concomitant]
     Active Substance: THIAMINE
  21. TYLENOL [Concomitant]
     Active Substance: ACETAMINOPHEN
  22. CYANOCOBALAMIN\FOLIC ACID [Concomitant]
     Active Substance: CYANOCOBALAMIN\FOLIC ACID

REACTIONS (1)
  - Hospice care [Not Recovered/Not Resolved]

NARRATIVE: CASE EVENT DATE: 20230402
